FAERS Safety Report 5807524-0 (Version None)
Quarter: 2008Q3

REPORT INFORMATION
  Report Type: 
  Country: None (occurrence: None)
  Receive Date: 20080711
  Receipt Date: 20080703
  Transmission Date: 20090109
  Serious: Yes (Other)
  Sender: FDA-Public Use
  Company Number: US-BAYER-200812711BCC

PATIENT
  Age: 12 Year
  Sex: Male
  Weight: 41 kg

DRUGS (1)
  1. RID SHAMPOO + CONDITIONER [Suspect]
     Indication: LICE INFESTATION
     Route: 061
     Dates: start: 20080702

REACTIONS (3)
  - HAEMATEMESIS [None]
  - STOMACH DISCOMFORT [None]
  - VOMITING [None]
